FAERS Safety Report 9537229 (Version 1)
Quarter: 2013Q3

REPORT INFORMATION
  Report Type: Spontaneous
  Country: US (occurrence: None)
  Receive Date: 20130918
  Receipt Date: 20130918
  Transmission Date: 20140515
  Serious: No
  Sender: FDA-Public Use
  Company Number: None

PATIENT
  Age: 33 Year
  Sex: Female
  Weight: 83.92 kg

DRUGS (1)
  1. CIPRO [Suspect]
     Indication: URINARY TRACT INFECTION
     Dosage: 1 PILL TWICE DAILY TAKEN BY MOUTH
     Route: 048
     Dates: start: 20130910, end: 20130916

REACTIONS (9)
  - Heart rate increased [None]
  - Heart rate irregular [None]
  - Arthralgia [None]
  - Myalgia [None]
  - Neck pain [None]
  - Musculoskeletal pain [None]
  - Dyspnoea [None]
  - Anxiety [None]
  - Tachyphrenia [None]
